FAERS Safety Report 5209310-1 (Version None)
Quarter: 2006Q4

REPORT INFORMATION
  Report Type: 
  Country: None (occurrence: None)
  Receive Date: 20061101
  Receipt Date: 20060814
  Transmission Date: 20070319
  Serious: No
  Sender: FDA-Public Use
  Company Number: SPV1-2006-00447

PATIENT
  Sex: Female

DRUGS (12)
  1. FOSRENOL [Suspect]
     Indication: HYPERPHOSPHATAEMIA
     Dosage: 750 MG TDS, ORAL
     Route: 048
     Dates: start: 20060803, end: 20060808
  2. ZOCOR [Concomitant]
  3. PLENDIL [Concomitant]
  4. CORDARONE [Concomitant]
  5. PLAVIX [Concomitant]
  6. IMDUR [Concomitant]
  7. ALUTAB (ALUMINIUM HYDROXIDE GEL, DRIED) [Concomitant]
  8. TANATRIL (IMIDAPRIL HYDROCHLORIDE) [Concomitant]
  9. ALDOMET [Concomitant]
  10. RECORMON (ERYTHROPOIETIN HUMAN) [Concomitant]
  11. I/V ONE ALPHA LEO (ESCIN) [Concomitant]
  12. VENOFER [Concomitant]

REACTIONS (1)
  - DIARRHOEA [None]
